FAERS Safety Report 4422140-3 (Version None)
Quarter: 2004Q3

REPORT INFORMATION
  Report Type: 
  Country: None (occurrence: None)
  Receive Date: 20040805
  Receipt Date: 20040728
  Transmission Date: 20050211
  Serious: Yes (Other)
  Sender: FDA-Public Use
  Company Number: HQWYE097914NOV03

PATIENT
  Sex: Female

DRUGS (3)
  1. DIMETAPP [Suspect]
     Dosage: ORAL
     Route: 048
     Dates: start: 19860520
  2. ALKA-SELTZER PLUS COLD (ACETYLSALICYLIC ACID/CHLORPHENAMINE MALEATE/PH [Suspect]
     Dosage: ORAL
     Route: 048
     Dates: start: 19860520
  3. ALKA-SELTZER PLUS MAXIMUM STRENGTH SINUS (ACETYLSALICYLIC ACID/BROMPHE [Suspect]
     Dosage: ORAL
     Route: 048
     Dates: start: 19860520

REACTIONS (1)
  - ISCHAEMIC STROKE [None]
